FAERS Safety Report 4470860-7 (Version None)
Quarter: 2004Q4

REPORT INFORMATION
  Report Type: 
  Country: None (occurrence: None)
  Receive Date: 20041011
  Receipt Date: 20040930
  Transmission Date: 20050328
  Serious: Yes (Life-Threatening, Hospitalization, Disabling)
  Sender: FDA-Public Use
  Company Number: DE-JNJFOC-20041000516

PATIENT
  Age: 66 Year
  Sex: Female

DRUGS (9)
  1. HALDOL DECANOAT [Suspect]
     Route: 030
  2. CLOZAPINE [Suspect]
     Route: 049
  3. TRUXAL [Suspect]
     Route: 049
  4. FLUNITRAZEPAM [Suspect]
     Route: 049
  5. CAPTOHEXAL [Concomitant]
     Indication: HYPERTENSION
     Route: 049
  6. RANITIDINE [Concomitant]
  7. GODAMED [Concomitant]
     Route: 049
  8. BELOC [Concomitant]
     Route: 049
  9. LAXOFALK [Concomitant]
     Route: 049

REACTIONS (4)
  - CEREBRAL INFARCTION [None]
  - CEREBROVASCULAR ACCIDENT [None]
  - PARESIS [None]
  - SPEECH DISORDER [None]
